FAERS Safety Report 16619201 (Version 3)
Quarter: 2019Q3

REPORT INFORMATION
  Report Type: Report from Study
  Country: US (occurrence: US)
  Receive Date: 20190723
  Receipt Date: 20190808
  Transmission Date: 20191004
  Serious: Yes (Hospitalization, Other)
  Sender: FDA-Public Use
  Company Number: PHEH2019US030260

PATIENT
  Sex: Female

DRUGS (1)
  1. MAYZENT [Suspect]
     Active Substance: SIPONIMOD
     Indication: RELAPSING MULTIPLE SCLEROSIS
     Dosage: 2 MG, QD
     Route: 048
     Dates: start: 20190529

REACTIONS (9)
  - Gait disturbance [Unknown]
  - Nervousness [Unknown]
  - Urinary tract infection [Unknown]
  - Asthenia [Unknown]
  - Headache [Unknown]
  - Nightmare [Unknown]
  - Fall [Unknown]
  - Eye colour change [Unknown]
  - Drug ineffective [Unknown]
